FAERS Safety Report 24559118 (Version 3)
Quarter: 2024Q4

REPORT INFORMATION
  Report Type: Report from Study
  Country: US (occurrence: US)
  Receive Date: 20241029
  Receipt Date: 20241220
  Transmission Date: 20250115
  Serious: Yes (Other)
  Sender: ACADIA PHARMACEUTICALS
  Company Number: US-ACADIA PHARMACEUTICALS INC.-ACA-2024-TRF-006402

PATIENT
  Age: 26 Year
  Sex: Female

DRUGS (2)
  1. DAYBUE [Suspect]
     Active Substance: TROFINETIDE
     Indication: Rett syndrome
     Dosage: 70 MILLILITER, QD (50 ML IN THE MORNING AND 20ML IN THE EVENING)
     Route: 048
  2. DAYBUE [Suspect]
     Active Substance: TROFINETIDE
     Dosage: 75 MILLILITER, QD (50 ML IN THE MORNING AND 25ML IN THE EVENING)
     Route: 048

REACTIONS (6)
  - Seizure [Not Recovered/Not Resolved]
  - Vagal nerve stimulator implantation [Not Recovered/Not Resolved]
  - Underdose [Not Recovered/Not Resolved]
  - Skin disorder [Not Recovered/Not Resolved]
  - Diarrhoea [Not Recovered/Not Resolved]
  - Diarrhoea [Not Recovered/Not Resolved]

NARRATIVE: CASE EVENT DATE: 20241001
